FAERS Safety Report 5618899-X (Version None)
Quarter: 2008Q1

REPORT INFORMATION
  Report Type: 
  Country: None (occurrence: None)
  Receive Date: 20080207
  Receipt Date: 20080128
  Transmission Date: 20080703
  Serious: Yes (Other)
  Sender: FDA-Public Use
  Company Number: US-ELI_LILLY_AND_COMPANY-US200712000522

PATIENT
  Sex: Female

DRUGS (4)
  1. CYMBALTA [Suspect]
     Indication: DEPRESSION
     Dosage: 30 MG, UNK
     Dates: start: 20071018, end: 20071115
  2. CYMBALTA [Suspect]
     Dosage: 60 MG, UNK
     Dates: end: 20070928
  3. LAMICTAL [Concomitant]
     Dosage: 100 MG, DAILY (1/D)
     Dates: start: 20071018, end: 20071115
  4. DEPAKOTE [Concomitant]
     Dosage: 500 MG, EACH EVENING
     Dates: start: 20071018, end: 20071115

REACTIONS (8)
  - ABDOMINAL PAIN UPPER [None]
  - ANOREXIA [None]
  - ANXIETY [None]
  - ASCITES [None]
  - CONFUSIONAL STATE [None]
  - FATIGUE [None]
  - INFLUENZA LIKE ILLNESS [None]
  - SOMNOLENCE [None]
